FAERS Safety Report 4280006-6 (Version None)
Quarter: 2004Q1

REPORT INFORMATION
  Report Type: 
  Country: None (occurrence: None)
  Receive Date: 20040126
  Receipt Date: 20040112
  Transmission Date: 20041129
  Serious: Yes (Disabling)
  Sender: FDA-Public Use
  Company Number: 2004GB00057

PATIENT
  Age: 55 Year
  Sex: Male

DRUGS (4)
  1. LISINOPRIL [Suspect]
     Dosage: 10 MG DAILY PO
     Route: 048
     Dates: start: 20030201, end: 20030701
  2. SURGAM [Concomitant]
  3. BENDROFLUAZIDE [Concomitant]
  4. AMLODIPINE BESYLATE [Concomitant]

REACTIONS (2)
  - CONDITION AGGRAVATED [None]
  - ECZEMA [None]
